FAERS Safety Report 5717322-4 (Version None)
Quarter: 2008Q2

REPORT INFORMATION
  Report Type: 
  Country: None (occurrence: None)
  Receive Date: 20080424
  Receipt Date: 20080424
  Transmission Date: 20081010
  Serious: No
  Sender: FDA-Public Use
  Company Number: None

PATIENT
  Sex: Female

DRUGS (1)
  1. REFRESH CELUVIC EXTRA THICK GEL ALLERGEN, INC. [Suspect]
     Indication: DRY EYE
     Dosage: SINGLE-USE VIALS

REACTIONS (1)
  - PHARMACEUTICAL PRODUCT COMPLAINT [None]
